FAERS Safety Report 6273521-7 (Version None)
Quarter: 2009Q3

REPORT INFORMATION
  Report Type: 
  Country: None (occurrence: None)
  Receive Date: 20090720
  Receipt Date: 20090720
  Transmission Date: 20100115
  Serious: Yes (Other)
  Sender: FDA-Public Use
  Company Number: US-ABBOTT-09P-163-0585152-00

PATIENT
  Sex: Female
  Weight: 55.388 kg

DRUGS (18)
  1. HUMIRA [Suspect]
     Indication: PSORIATIC ARTHROPATHY
     Dates: start: 20051001
  2. UNKNOWN INHALERS [Concomitant]
     Indication: DRUG USE FOR UNKNOWN INDICATION
  3. UNKNOWN NEBULIZERS [Concomitant]
     Indication: DRUG USE FOR UNKNOWN INDICATION
  4. ALAVERT [Concomitant]
     Indication: DRUG USE FOR UNKNOWN INDICATION
  5. NEBULIZER [Concomitant]
     Indication: DRUG USE FOR UNKNOWN INDICATION
  6. METHOTREXATE [Concomitant]
     Indication: DRUG USE FOR UNKNOWN INDICATION
  7. SYNTHROID [Concomitant]
     Indication: DRUG USE FOR UNKNOWN INDICATION
  8. TRAZODONE HCL [Concomitant]
     Indication: DRUG USE FOR UNKNOWN INDICATION
  9. KLONOPIN [Concomitant]
     Indication: DRUG USE FOR UNKNOWN INDICATION
  10. PERCOCET [Concomitant]
     Indication: DRUG USE FOR UNKNOWN INDICATION
  11. PROTOPIC [Concomitant]
     Indication: DRUG USE FOR UNKNOWN INDICATION
  12. RECLAST [Concomitant]
     Indication: DRUG USE FOR UNKNOWN INDICATION
  13. CARAFATE [Concomitant]
     Indication: DRUG USE FOR UNKNOWN INDICATION
  14. SCALACTIN [Concomitant]
     Indication: DRUG USE FOR UNKNOWN INDICATION
  15. SEROQUEL [Concomitant]
     Indication: DRUG USE FOR UNKNOWN INDICATION
  16. ASMACORT [Concomitant]
     Indication: DRUG USE FOR UNKNOWN INDICATION
  17. PROAIRE [Concomitant]
     Indication: DRUG USE FOR UNKNOWN INDICATION
  18. VYDANSE [Concomitant]
     Indication: DRUG USE FOR UNKNOWN INDICATION

REACTIONS (9)
  - ARTHRALGIA [None]
  - BACK PAIN [None]
  - CYSTITIS [None]
  - DYSPNOEA [None]
  - FATIGUE [None]
  - MUSCULOSKELETAL PAIN [None]
  - NAUSEA [None]
  - RHINITIS [None]
  - ROTATOR CUFF SYNDROME [None]
